FAERS Safety Report 6464765-X (Version None)
Quarter: 2009Q4

REPORT INFORMATION
  Report Type: 
  Country: None (occurrence: None)
  Receive Date: 20091201
  Receipt Date: 20091119
  Transmission Date: 20100525
  Serious: Yes (Other)
  Sender: FDA-Public Use
  Company Number: PHHY2009MX51107

PATIENT
  Sex: Female

DRUGS (1)
  1. DIOVAN HCT [Suspect]
     Dosage: 1 DF (160/25 MG) PER DAY
     Dates: start: 20090915, end: 20090923

REACTIONS (3)
  - ARTERITIS [None]
  - PHLEBITIS [None]
  - TACHYCARDIA [None]
